FAERS Safety Report 12419687 (Version 10)
Quarter: 2018Q3

REPORT INFORMATION
  Report Type: Spontaneous
  Country: US (occurrence: US)
  Receive Date: 20160531
  Receipt Date: 20180828
  Transmission Date: 20181010
  Serious: Yes (Hospitalization, Other)
  Sender: FDA-Public Use
  Company Number: US-GLAXOSMITHKLINE-US2016GSK076388

PATIENT
  Sex: Male
  Weight: 93.88 kg

DRUGS (4)
  1. KEPPRA [Suspect]
     Active Substance: LEVETIRACETAM
     Indication: SEIZURE
     Dosage: UNK, U
     Route: 048
     Dates: start: 20150824
  2. LAMICTAL [Suspect]
     Active Substance: LAMOTRIGINE
     Indication: SEIZURE
     Dosage: 100 MG UNK, U
     Route: 048
  3. LAMOTRIGINE. [Suspect]
     Active Substance: LAMOTRIGINE
     Indication: EPILEPSY
     Dosage: UNK, U 100 MG TABLETS
     Route: 048
     Dates: start: 20140519
  4. LAMICTAL XR [Suspect]
     Active Substance: LAMOTRIGINE
     Indication: SEIZURE
     Dosage: 100 MG, UNK
     Route: 048
     Dates: start: 2015

REACTIONS (16)
  - Status epilepticus [Unknown]
  - Weight decreased [Unknown]
  - Drug ineffective [Unknown]
  - Emergency care [Unknown]
  - Coronary artery bypass [Recovered/Resolved]
  - Myocardial infarction [Not Recovered/Not Resolved]
  - Seizure [Unknown]
  - Ageusia [Not Recovered/Not Resolved]
  - Loss of consciousness [Unknown]
  - Generalised tonic-clonic seizure [Recovered/Resolved]
  - Somnolence [Unknown]
  - Drug dose omission [Unknown]
  - Hospitalisation [Unknown]
  - Apparent death [Unknown]
  - Disorientation [Unknown]
  - Anosmia [Not Recovered/Not Resolved]

NARRATIVE: CASE EVENT DATE: 2013
